FAERS Safety Report 4499599-9 (Version None)
Quarter: 2004Q4

REPORT INFORMATION
  Report Type: 
  Country: None (occurrence: None)
  Receive Date: 20041112
  Receipt Date: 20041101
  Transmission Date: 20050328
  Serious: Yes (Life-Threatening, Hospitalization)
  Sender: FDA-Public Use
  Company Number: JP-JNJFOC-20040604224

PATIENT
  Sex: Male
  Weight: 100 kg

DRUGS (31)
  1. REMICADE [Suspect]
     Route: 042
  2. REMICADE [Suspect]
     Route: 042
  3. REMICADE [Suspect]
     Indication: RHEUMATOID ARTHRITIS
     Route: 042
  4. METHOTREXATE [Concomitant]
  5. METHOTREXATE [Concomitant]
  6. PREDONINE [Concomitant]
     Indication: RHEUMATOID ARTHRITIS
     Route: 049
  7. SOLU-CORTEF [Concomitant]
     Indication: RHEUMATOID ARTHRITIS
     Route: 049
  8. LOXONINE [Concomitant]
     Indication: RHEUMATOID ARTHRITIS
     Route: 049
  9. SELTOUCH [Concomitant]
     Indication: RHEUMATOID ARTHRITIS
  10. VOLTAREN [Concomitant]
     Indication: RHEUMATOID ARTHRITIS
  11. RESTAMIN-KOWA [Concomitant]
     Indication: RHEUMATOID ARTHRITIS
  12. SUMILU STICK [Concomitant]
     Indication: RHEUMATOID ARTHRITIS
  13. FOLIAMIN [Concomitant]
     Route: 049
  14. RIZABEN [Concomitant]
     Route: 049
  15. UFT [Concomitant]
     Route: 049
  16. AMARYL [Concomitant]
     Route: 049
  17. DIBETOS [Concomitant]
     Route: 049
  18. HITUDOID [Concomitant]
  19. FLOMOX [Concomitant]
     Route: 049
  20. PL-G [Concomitant]
     Route: 049
  21. MEPTIN-MINI [Concomitant]
     Route: 049
  22. BISOLVON [Concomitant]
     Route: 049
  23. ASTOMIN [Concomitant]
     Route: 049
  24. PURSENNID [Concomitant]
     Route: 049
  25. CEFOTIAM HYDROCHLORIDE [Concomitant]
     Route: 042
  26. MUCOSOLVAN [Concomitant]
     Route: 049
  27. GASTER [Concomitant]
     Route: 049
  28. ISODINE GURGLE [Concomitant]
  29. ZITHROMAX [Concomitant]
     Route: 049
  30. HACHIAZULE [Concomitant]
  31. HACHIAZULE [Concomitant]

REACTIONS (1)
  - LUNG ADENOCARCINOMA [None]
